FAERS Safety Report 24084438 (Version 1)
Quarter: 2024Q3

REPORT INFORMATION
  Report Type: Spontaneous
  Country: JP (occurrence: JP)
  Receive Date: 20240712
  Receipt Date: 20240712
  Transmission Date: 20241016
  Serious: No
  Sender: PIERRE FABRE MEDICAMENT
  Company Number: JP-PFM-2022-01771

PATIENT
  Age: 3 Month
  Sex: Female

DRUGS (4)
  1. PROPRANOLOL HYDROCHLORIDE [Suspect]
     Active Substance: PROPRANOLOL HYDROCHLORIDE
     Indication: Infantile haemangioma
     Dosage: UNK, BID (2/DAY)
     Route: 048
     Dates: start: 20210802
  2. PROPRANOLOL HYDROCHLORIDE [Suspect]
     Active Substance: PROPRANOLOL HYDROCHLORIDE
     Dosage: 2 MG/KG
     Route: 048
  3. PROPRANOLOL HYDROCHLORIDE [Suspect]
     Active Substance: PROPRANOLOL HYDROCHLORIDE
     Dosage: 3 MG/KG
     Route: 048
     Dates: start: 20220222
  4. PROPRANOLOL HYDROCHLORIDE [Suspect]
     Active Substance: PROPRANOLOL HYDROCHLORIDE
     Dosage: 1.5 MG, BID (2/DAY)
     Route: 048
     Dates: start: 20220406

REACTIONS (1)
  - COVID-19 [Recovered/Resolved]

NARRATIVE: CASE EVENT DATE: 20220208
